FAERS Safety Report 8225389-7 (Version None)
Quarter: 2012Q1

REPORT INFORMATION
  Report Type: 
  Country: None (occurrence: None)
  Receive Date: 20120321
  Receipt Date: 20120312
  Transmission Date: 20120608
  Serious: Yes (Hospitalization, Other)
  Sender: FDA-Public Use
  Company Number: US-ELI_LILLY_AND_COMPANY-US201109001357

PATIENT
  Sex: Female

DRUGS (6)
  1. BETAPACE [Concomitant]
     Indication: CARDIAC DISORDER
     Dosage: 40 MG, QD
  2. ASPIRIN [Concomitant]
  3. LIBRIUM [Concomitant]
  4. FORTEO [Suspect]
     Indication: OSTEOPOROSIS
     Dosage: 20 UG, UNK
  5. VITAMIN D [Concomitant]
  6. PROTONIX [Concomitant]

REACTIONS (9)
  - DYSPNOEA [None]
  - ARRHYTHMIA [None]
  - ILL-DEFINED DISORDER [None]
  - ASTHENIA [None]
  - ANXIETY [None]
  - BACK PAIN [None]
  - OSTEOPOROSIS [None]
  - PARANASAL SINUS HYPERSECRETION [None]
  - SINUSITIS [None]
